FAERS Safety Report 7536015-4 (Version None)
Quarter: 2011Q2

REPORT INFORMATION
  Report Type: 
  Country: None (occurrence: None)
  Receive Date: 20110609
  Receipt Date: 20110606
  Transmission Date: 20111010
  Serious: No
  Sender: FDA-Public Use
  Company Number: US-PFIZER INC-2011122451

PATIENT
  Sex: Female
  Weight: 109 kg

DRUGS (6)
  1. PHENOBARBITAL [Concomitant]
     Indication: CONVULSION
     Dosage: 150 MG, DAILY
     Route: 048
  2. PRISTIQ [Suspect]
     Indication: ANXIETY
     Dosage: 100 MG, DAILY
     Route: 048
     Dates: start: 20110201
  3. PRISTIQ [Suspect]
     Indication: DEPRESSION
  4. TEGRETOL [Concomitant]
     Indication: CONVULSION
     Dosage: 1800 MG, DAILY
  5. SYNTHROID [Concomitant]
     Indication: THYROID DISORDER
     Dosage: 300 UG, DAILY
     Route: 048
  6. NEXIUM [Concomitant]
     Indication: GASTROOESOPHAGEAL REFLUX DISEASE
     Dosage: 40 MG, DAILY

REACTIONS (1)
  - JOINT SWELLING [None]
